FAERS Safety Report 4276394-7 (Version None)
Quarter: 2004Q1

REPORT INFORMATION
  Report Type: 
  Country: None (occurrence: None)
  Receive Date: 20040121
  Receipt Date: 20031201
  Transmission Date: 20041129
  Serious: Yes (Death, Hospitalization)
  Sender: FDA-Public Use
  Company Number: US-BRISTOL-MYERS SQUIBB COMPANY-12445615

PATIENT
  Age: 77 Year
  Sex: Female
  Weight: 101 kg

DRUGS (17)
  1. SINEMET CR [Suspect]
     Indication: PARKINSON'S DISEASE
     Dosage: DOSE VALUE:  25 MG/100 MG
     Route: 048
     Dates: end: 20031130
  2. GLUCOVANCE [Concomitant]
     Dates: end: 20031031
  3. MAXZIDE [Concomitant]
     Dates: end: 20031031
  4. ACTOS [Concomitant]
     Dates: end: 20031031
  5. FLUCONAZOLE [Concomitant]
     Dates: start: 20031031, end: 20031124
  6. FOLIC ACID [Concomitant]
     Dates: start: 20031031, end: 20031213
  7. DIGOXIN [Concomitant]
     Dates: end: 20031213
  8. PANTOPRAZOLE [Concomitant]
     Dates: start: 20031031, end: 20031213
  9. LASIX [Concomitant]
     Dates: start: 20031031, end: 20031213
  10. DILTIAZEM HCL [Concomitant]
     Dates: start: 20031031, end: 20031213
  11. PREVACID [Concomitant]
     Dates: start: 20031031, end: 20031213
  12. LISINOPRIL [Concomitant]
     Dates: start: 20031124, end: 20031213
  13. HUMULIN INSULIN [Concomitant]
  14. ENOXAPARIN SODIUM [Concomitant]
  15. NITROFURANTOIN [Concomitant]
  16. LINEZOLID [Concomitant]
  17. ZOSYN [Concomitant]

REACTIONS (4)
  - ANAEMIA HAEMOLYTIC AUTOIMMUNE [None]
  - DISSEMINATED INTRAVASCULAR COAGULATION [None]
  - LACTIC ACIDOSIS [None]
  - SEPSIS [None]
